FAERS Safety Report 24014965 (Version 1)
Quarter: 2024Q2

REPORT INFORMATION
  Report Type: Spontaneous
  Country: GB (occurrence: GB)
  Receive Date: 20240626
  Receipt Date: 20240626
  Transmission Date: 20240716
  Serious: Yes (Other)
  Sender: FDA-Public Use
  Company Number: None

PATIENT
  Age: 76 Year
  Sex: Female
  Weight: 68 kg

DRUGS (24)
  1. DOXYCYCLINE [Suspect]
     Active Substance: DOXYCYCLINE\DOXYCYCLINE HYCLATE
     Indication: Lower respiratory tract infection
     Dosage: UNK (TWO NOW THEN ONE DAILY (PLEASE COMPLETE THE COU...)
     Route: 065
     Dates: start: 20240620
  2. BETAMETHASONE VALERATE [Concomitant]
     Active Substance: BETAMETHASONE VALERATE
     Indication: Ill-defined disorder
     Dosage: 1 DOSAGE FORM, BID (APPLY BD FOR UP TO 14 DAYS TO EAR)
     Route: 065
     Dates: start: 20240325, end: 20240401
  3. QUININE SULFATE [Concomitant]
     Active Substance: QUININE SULFATE
     Indication: Muscle spasms
     Dosage: 1 DOSAGE FORM, PM (1 AT NIGHT/PRN FOR CRAMP)
     Route: 065
     Dates: start: 20240422
  4. AMOXICILLIN [Concomitant]
     Active Substance: AMOXICILLIN
     Indication: Ill-defined disorder
     Dosage: 1 DOSAGE FORM, TID (TAKE ONE 3 TIMES/DAY)
     Route: 065
     Dates: start: 20240620
  5. BENZYDAMINE [Concomitant]
     Active Substance: BENZYDAMINE
     Indication: Ill-defined disorder
     Dosage: UNK (AS DIR)
     Route: 065
     Dates: start: 20230524
  6. AMITRIPTYLINE HYDROCHLORIDE [Concomitant]
     Active Substance: AMITRIPTYLINE HYDROCHLORIDE
     Indication: Ill-defined disorder
     Dosage: UNK UNK, PM (ONE OR TWO TO BE TAKEN AT NIGHT)
     Route: 065
     Dates: start: 20231012
  7. ASPIRIN [Concomitant]
     Active Substance: ASPIRIN
     Indication: Ill-defined disorder
     Dosage: 1 DOSAGE FORM, QD (ONE TO BE TAKEN EACH DAY)
     Route: 065
     Dates: start: 20231012
  8. BISOPROLOL [Concomitant]
     Active Substance: BISOPROLOL\BISOPROLOL FUMARATE
     Indication: Ill-defined disorder
     Dosage: 1 DOSAGE FORM, PM (ONE TO BE TAKEN EACH DAY)
     Route: 065
     Dates: start: 20231012
  9. DAPAGLIFLOZIN [Concomitant]
     Active Substance: DAPAGLIFLOZIN
     Indication: Ill-defined disorder
     Dosage: 1 DOSAGE FORM, QD (ONE TO BE TAKEN DAILY)
     Route: 065
     Dates: start: 20231012
  10. EPLERENONE [Concomitant]
     Active Substance: EPLERENONE
     Indication: Ill-defined disorder
     Dosage: 0.5 DOSAGE FORM, QD (TAKE HALF TABLET DAILY)
     Route: 065
     Dates: start: 20231012
  11. FUROSEMIDE [Concomitant]
     Active Substance: FUROSEMIDE
     Indication: Ill-defined disorder
     Dosage: 1 DOSAGE FORM, AM (ONE TO BE TAKEN EACH MORNING AS PER COMMUNITY
     Route: 065
     Dates: start: 20231012
  12. GLYCOSAMINOGLYCANS [Concomitant]
     Active Substance: GLYCOSAMINOGLYCANS
     Indication: Ill-defined disorder
     Dosage: UNK
     Dates: start: 20231012
  13. GLYCOSAMINOGLYCANS [Concomitant]
     Active Substance: GLYCOSAMINOGLYCANS
     Dosage: UNK (APPLY UP TO FOUR TIMES A DAY)
     Route: 065
  14. MEBEVERINE HYDROCHLORIDE [Concomitant]
     Active Substance: MEBEVERINE HYDROCHLORIDE
     Indication: Ill-defined disorder
     Dosage: 1 DOSAGE FORM, QID (ONE TO BE TAKEN FOUR TIMES A DAY)
     Route: 065
     Dates: start: 20231012
  15. SACUBITRIL [Concomitant]
     Active Substance: SACUBITRIL
     Indication: Ill-defined disorder
     Dosage: 1 DOSAGE FORM, BID (ONE TO BE TAKEN TWICE A DAY)
     Route: 065
     Dates: start: 20231012
  16. ATORVASTATIN [Concomitant]
     Active Substance: ATORVASTATIN
     Indication: Ill-defined disorder
     Dosage: 1 DOSAGE FORM, QD (ONE TO BE TAKEN DAILY)
     Route: 065
     Dates: start: 20231012
  17. OMEPRAZOLE [Concomitant]
     Active Substance: DONEPEZIL HYDROCHLORIDE\OMEPRAZOLE\OMEPRAZOLE MAGNESIUM
     Indication: Ill-defined disorder
     Dosage: 2 DOSAGE FORM, BID (TAKE TWO TO BE TAKEN TWICE DAILY WHILE ON ASPIRIN)
     Route: 065
     Dates: start: 20231017
  18. IBUPROFEN [Concomitant]
     Active Substance: IBUPROFEN
     Indication: Osteoarthritis
     Dosage: 1 DOSAGE FORM, TID (APPLY 3 TIMES/DAY FOR KNEE OA)
     Route: 065
     Dates: start: 20240109
  19. POLYETHYLENE GLYCOL 3350\POTASSIUM CHLORIDE\SODIUM BICARBONATE\SODIUM [Concomitant]
     Active Substance: POLYETHYLENE GLYCOL 3350\POTASSIUM CHLORIDE\SODIUM BICARBONATE\SODIUM CHLORIDE
     Indication: Constipation
     Dosage: UNK (1-4 DAILY AS NEEDED FOR CONSTIPATION, ORANGE)
     Route: 065
     Dates: start: 20240201
  20. COCODAMOL [Concomitant]
     Active Substance: ACETAMINOPHEN\CODEINE PHOSPHATE
     Indication: Pain
     Dosage: UNK (1-2 QDS/PRN FOR SEVERE PAIN)
     Route: 065
     Dates: start: 20240228
  21. COCODAMOL [Concomitant]
     Active Substance: ACETAMINOPHEN\CODEINE PHOSPHATE
     Indication: Ill-defined disorder
  22. NITROGLYCERIN [Concomitant]
     Active Substance: NITROGLYCERIN
     Indication: Ill-defined disorder
     Dosage: 2 DOSAGE FORM (TWO SPRAYS WHEN NEEDED)
     Route: 065
     Dates: start: 20240410
  23. ACETAMINOPHEN [Concomitant]
     Active Substance: ACETAMINOPHEN
     Indication: Ill-defined disorder
     Dosage: 2 DOSAGE FORM, QID (TWO TO BE TAKEN FOUR TIMES A DAY WHEN NEEDED)
     Route: 065
     Dates: start: 20240410
  24. ISOSORBIDE MONONITRATE [Concomitant]
     Active Substance: ISOSORBIDE MONONITRATE
     Indication: Ill-defined disorder
     Dosage: 0.5 DOSAGE FORM, PM (TAKE HALF A TABLET EVERY NIGHT)
     Route: 065
     Dates: start: 20240502

REACTIONS (2)
  - Gastrointestinal disorder [Recovered/Resolved]
  - Nausea [Recovered/Resolved]

NARRATIVE: CASE EVENT DATE: 20240620
